FAERS Safety Report 6061896-3 (Version None)
Quarter: 2009Q1

REPORT INFORMATION
  Report Type: 
  Country: None (occurrence: None)
  Receive Date: 20090202
  Receipt Date: 20090121
  Transmission Date: 20090719
  Serious: Yes (Hospitalization, Other)
  Sender: FDA-Public Use
  Company Number: PHHY2008CA32577

PATIENT
  Sex: Male

DRUGS (4)
  1. CLOZARIL [Suspect]
     Indication: SCHIZOPHRENIA
     Dosage: 475 MG DAILY
     Dates: start: 20061128, end: 20090120
  2. CLOZARIL [Suspect]
     Dosage: UNK
     Dates: end: 20081027
  3. CLOZARIL [Suspect]
     Dosage: UNK
     Dates: end: 20090120
  4. RIVOTRIL [Concomitant]
     Dosage: 0.5 MG PRN, 2 TABLETS DAILY

REACTIONS (6)
  - ANXIETY [None]
  - BIPOLAR DISORDER [None]
  - DRUG INEFFECTIVE [None]
  - PSYCHOMOTOR RETARDATION [None]
  - SCHIZOPHRENIA [None]
  - TACHYCARDIA [None]
